FAERS Safety Report 4368970-8 (Version None)
Quarter: 2004Q2

REPORT INFORMATION
  Report Type: 
  Country: None (occurrence: None)
  Receive Date: 20040527
  Receipt Date: 20040514
  Transmission Date: 20050107
  Serious: Yes (Hospitalization)
  Sender: FDA-Public Use
  Company Number: K200400737

PATIENT
  Age: 76 Year
  Sex: Female
  Weight: 73.9 kg

DRUGS (8)
  1. LEVOXYL [Suspect]
     Indication: HYPOTHYROIDISM
     Dosage: 137 MCG, QD, ORAL; 150 MCG, QD, ORAL
     Route: 048
     Dates: start: 20020101, end: 20040423
  2. LEVOXYL [Suspect]
     Indication: HYPOTHYROIDISM
     Dosage: 137 MCG, QD, ORAL; 150 MCG, QD, ORAL
     Route: 048
     Dates: start: 20040424
  3. TOPROL-XL [Concomitant]
  4. BENICAR [Concomitant]
  5. ZOLOFT [Concomitant]
  6. MULTIVIT (VITAMINS NOS) [Concomitant]
  7. VITAMIN E [Concomitant]
  8. FOLIC ACID (FOLIC ACIF) [Concomitant]

REACTIONS (3)
  - AORTIC ANEURYSM [None]
  - EPISTAXIS [None]
  - OEDEMA PERIPHERAL [None]
